FAERS Safety Report 16354743 (Version 1)
Quarter: 2019Q2

REPORT INFORMATION
  Report Type: Spontaneous
  Country: FR (occurrence: FR)
  Receive Date: 20190524
  Receipt Date: 20190524
  Transmission Date: 20190711
  Serious: Yes (Other)
  Sender: FDA-Public Use
  Company Number: FR-ELI_LILLY_AND_COMPANY-FR201905008550

PATIENT
  Age: 17 Year
  Sex: Female

DRUGS (1)
  1. PROZAC [Suspect]
     Active Substance: FLUOXETINE HYDROCHLORIDE
     Indication: ANXIETY DISORDER
     Dosage: UNK
     Route: 048
     Dates: start: 20190122, end: 20190328

REACTIONS (3)
  - Psychomotor hyperactivity [Recovering/Resolving]
  - Inappropriate affect [Recovering/Resolving]
  - Euphoric mood [Recovering/Resolving]

NARRATIVE: CASE EVENT DATE: 20190318
